FAERS Safety Report 20465351 (Version 1)
Quarter: 2022Q1

REPORT INFORMATION
  Report Type: Spontaneous
  Country: RO (occurrence: RO)
  Receive Date: 20220212
  Receipt Date: 20220212
  Transmission Date: 20220423
  Serious: Yes (Death, Other)
  Sender: FDA-Public Use
  Company Number: None

PATIENT
  Age: 46 Year
  Sex: Male

DRUGS (12)
  1. IMATINIB [Suspect]
     Active Substance: IMATINIB
     Indication: Non-Hodgkin^s lymphoma
  2. OXALIPLATIN [Suspect]
     Active Substance: OXALIPLATIN
     Indication: Non-Hodgkin^s lymphoma
  3. GEMCITABINE [Suspect]
     Active Substance: GEMCITABINE
     Indication: Non-Hodgkin^s lymphoma
  4. DEXAMETHASONE [Suspect]
     Active Substance: DEXAMETHASONE
     Indication: Non-Hodgkin^s lymphoma
  5. ETOPOSIDE [Suspect]
     Active Substance: ETOPOSIDE
     Indication: Non-Hodgkin^s lymphoma
  6. DOXORUBICIN [Suspect]
     Active Substance: DOXORUBICIN
     Indication: Non-Hodgkin^s lymphoma
  7. CISPLATIN [Suspect]
     Active Substance: CISPLATIN
     Indication: Non-Hodgkin^s lymphoma
  8. VINCRISTINE [Suspect]
     Active Substance: VINCRISTINE
     Indication: Non-Hodgkin^s lymphoma
  9. CYTARABINE [Suspect]
     Active Substance: CYTARABINE
     Indication: Non-Hodgkin^s lymphoma
  10. PREDNISONE [Suspect]
     Active Substance: PREDNISONE
     Indication: Non-Hodgkin^s lymphoma
  11. CYCLOPHOSPHAMIDE [Suspect]
     Active Substance: CYCLOPHOSPHAMIDE
     Indication: Non-Hodgkin^s lymphoma
  12. BRENTUXIMAB [Concomitant]
     Active Substance: BRENTUXIMAB
     Indication: Non-Hodgkin^s lymphoma

REACTIONS (16)
  - Asthenia [Unknown]
  - Oedema [Unknown]
  - Hypoglycaemia [Unknown]
  - Tachypnoea [Unknown]
  - Hypotension [Unknown]
  - Lymphadenopathy [Unknown]
  - Diarrhoea [Unknown]
  - Pleurisy [Unknown]
  - Leukocytosis [Unknown]
  - Hepatosplenomegaly [Unknown]
  - Cardiac failure [Unknown]
  - Adrenal disorder [Unknown]
  - Disease progression [Fatal]
  - Multiple organ dysfunction syndrome [Fatal]
  - Eosinophilia [Unknown]
  - Drug ineffective [Unknown]
